FAERS Safety Report 4678765-3 (Version None)
Quarter: 2005Q2

REPORT INFORMATION
  Report Type: 
  Country: None (occurrence: None)
  Receive Date: 20050531
  Receipt Date: 20050523
  Transmission Date: 20051028
  Serious: Yes (Other)
  Sender: FDA-Public Use
  Company Number: HQWYE899024MAY05

PATIENT
  Age: 44 Year
  Sex: Female
  Weight: 73.55 kg

DRUGS (6)
  1. EFFEXOR [Suspect]
     Indication: CONVULSION
     Dosage: ORAL
     Route: 048
  2. PREVACID [Suspect]
     Indication: GASTROOESOPHAGEAL REFLUX DISEASE
     Dosage: 30 MG 1X PER 1 DAY, ORAL
     Route: 048
     Dates: start: 20050301, end: 20050322
  3. TOPAMAX [Suspect]
     Indication: CONVULSION
     Dosage: ORAL
     Route: 048
  4. ZYRTEC [Concomitant]
  5. RHINOCORT [Concomitant]
  6. LEVLEN (ETHINYLESTRADIOL/LEVONORGESTREL) [Concomitant]

REACTIONS (3)
  - CONDITION AGGRAVATED [None]
  - CONVULSION [None]
  - DRUG INTERACTION [None]
